FAERS Safety Report 12788436 (Version 1)
Quarter: 2016Q3

REPORT INFORMATION
  Report Type: Spontaneous
  Country: DK (occurrence: DK)
  Receive Date: 20160928
  Receipt Date: 20160928
  Transmission Date: 20161109
  Serious: Yes (Disabling)
  Sender: FDA-Public Use
  Company Number: DK-TEVA-694687ACC

PATIENT
  Age: 22 Year
  Sex: Male
  Weight: 75 kg

DRUGS (1)
  1. ISOTRETINOIN ^ACTAVIS^ [Suspect]
     Active Substance: ISOTRETINOIN
     Indication: ACNE
     Dosage: DOSE: 40 MG, STRENGTH: 20 MG X 2 DGL.
     Route: 048
     Dates: start: 20160406, end: 20160707

REACTIONS (1)
  - Anxiety [Recovering/Resolving]

NARRATIVE: CASE EVENT DATE: 20160707
